FAERS Safety Report 4954211-7 (Version None)
Quarter: 2006Q1

REPORT INFORMATION
  Report Type: 
  Country: None (occurrence: None)
  Receive Date: 20060327
  Receipt Date: 20051031
  Transmission Date: 20060701
  Serious: Yes (Hospitalization, Disabling)
  Sender: FDA-Public Use
  Company Number: US-MERCK-0511USA00136

PATIENT
  Age: 32 Year
  Sex: Male
  Weight: 150 kg

DRUGS (8)
  1. VIOXX [Suspect]
     Indication: ARTHRALGIA
     Route: 048
     Dates: start: 20010101, end: 20040101
  2. VIOXX [Suspect]
     Route: 065
  3. VIOXX [Suspect]
     Route: 048
     Dates: start: 20010101, end: 20040101
  4. VIOXX [Suspect]
     Route: 065
  5. NEXIUM [Suspect]
     Route: 065
  6. DARVOCET [Concomitant]
     Route: 065
  7. CORGARD [Concomitant]
     Route: 065
  8. BEXTRA [Suspect]
     Route: 065

REACTIONS (11)
  - ANGINA UNSTABLE [None]
  - ARTHROPATHY [None]
  - CARDIAC VALVE DISEASE [None]
  - CHEST PAIN [None]
  - CHRONIC OBSTRUCTIVE PULMONARY DISEASE [None]
  - DYSPNOEA [None]
  - GASTROOESOPHAGEAL REFLUX DISEASE [None]
  - HYPERTROPHIC CARDIOMYOPATHY [None]
  - MYOCARDIAL INFARCTION [None]
  - OEDEMA [None]
  - OVERDOSE [None]
